FAERS Safety Report 21159194 (Version 2)
Quarter: 2022Q3

REPORT INFORMATION
  Report Type: Spontaneous
  Country: FR (occurrence: FR)
  Receive Date: 20220802
  Receipt Date: 20220905
  Transmission Date: 20221026
  Serious: Yes (Other)
  Sender: FDA-Public Use
  Company Number: None

PATIENT
  Age: 73 Year
  Sex: Female
  Weight: 60 kg

DRUGS (2)
  1. XELODA [Suspect]
     Active Substance: CAPECITABINE
     Indication: Breast cancer metastatic
     Dosage: CURE 1: 3 TABS OF 500MG IN THE MORNING AND 3 TABS OF 500MG IN THE EVENING FOR 14 DAYS THEN A 7-DAY B
     Route: 048
     Dates: start: 20211217, end: 20211231
  2. XELODA [Suspect]
     Active Substance: CAPECITABINE
     Dosage: CURE 2: 1 TAB OF 150MG IN THE MORNING AND 1 TAB OF 150MG IN THE EVENING
     Route: 048
     Dates: start: 20220105, end: 20220119

REACTIONS (1)
  - Hepatic cytolysis [Recovered/Resolved]

NARRATIVE: CASE EVENT DATE: 20220105
